FAERS Safety Report 12578604 (Version 1)
Quarter: 2016Q3

REPORT INFORMATION
  Report Type: Spontaneous
  Country: US (occurrence: None)
  Receive Date: 20160720
  Receipt Date: 20160720
  Transmission Date: 20161109
  Serious: Yes (Hospitalization)
  Sender: FDA-Public Use
  Company Number: None

PATIENT
  Age: 67 Year
  Sex: Male
  Weight: 88 kg

DRUGS (1)
  1. LAMOTRIGINE. [Suspect]
     Active Substance: LAMOTRIGINE
     Indication: BIPOLAR I DISORDER
     Route: 048
     Dates: start: 20160406, end: 20160420

REACTIONS (4)
  - Scab [None]
  - Dermatitis [None]
  - Vision blurred [None]
  - Skin lesion [None]

NARRATIVE: CASE EVENT DATE: 20160715
